FAERS Safety Report 21477612 (Version 1)
Quarter: 2022Q4

REPORT INFORMATION
  Report Type: Spontaneous
  Country: US (occurrence: None)
  Receive Date: 20221018
  Receipt Date: 20221018
  Transmission Date: 20230113
  Serious: Yes (Death, Hospitalization)
  Sender: FDA-Public Use
  Company Number: None

PATIENT
  Age: 73 Year
  Sex: Female
  Weight: 49.5 kg

DRUGS (3)
  1. REMDESIVIR [Suspect]
     Active Substance: REMDESIVIR
     Indication: COVID-19
     Dates: start: 20211115, end: 20211120
  2. ASPIRIN [Concomitant]
     Active Substance: ASPIRIN
  3. ZINC [Concomitant]
     Active Substance: ZINC

REACTIONS (8)
  - General physical health deterioration [None]
  - Multiple organ dysfunction syndrome [None]
  - Nephropathy toxic [None]
  - Hepatotoxicity [None]
  - Toxicity to various agents [None]
  - Pneumonia bacterial [None]
  - Renal failure [None]
  - Hepatic failure [None]

NARRATIVE: CASE EVENT DATE: 20211115
